FAERS Safety Report 5865332-9 (Version None)
Quarter: 2008Q3

REPORT INFORMATION
  Report Type: 
  Country: None (occurrence: None)
  Receive Date: 20080829
  Receipt Date: 20080807
  Transmission Date: 20090109
  Serious: Yes (Hospitalization, Other)
  Sender: FDA-Public Use
  Company Number: GB-MERCK-0808GBR00042M

PATIENT
  Age: 30 Year
  Sex: Female
  Weight: 72 kg

DRUGS (7)
  1. DECADRON SRC [Suspect]
     Indication: MATERNAL THERAPY TO ENHANCE FOETAL LUNG MATURITY
     Route: 048
  2. CHLORPHENIRAMINE MALEATE [Suspect]
     Route: 065
  3. CYCLOSPORINE [Suspect]
     Route: 065
  4. GENTAMICIN [Suspect]
     Route: 065
  5. METRONIDAZOLE [Suspect]
     Route: 065
  6. MORPHINE [Suspect]
     Route: 065
  7. ACETAMINOPHEN [Suspect]
     Route: 065

REACTIONS (4)
  - CAESAREAN SECTION [None]
  - DRUG EXPOSURE DURING PREGNANCY [None]
  - PRURITUS [None]
  - PUSTULAR PSORIASIS [None]
